FAERS Safety Report 17925222 (Version 2)
Quarter: 2020Q2

REPORT INFORMATION
  Report Type: Report from Study
  Country: CN (occurrence: CN)
  Receive Date: 20200622
  Receipt Date: 20200629
  Transmission Date: 20200714
  Serious: Yes (Hospitalization)
  Sender: FDA-Public Use
  Company Number: CN-JNJFOC-20200617744

PATIENT
  Age: 66 Year
  Sex: Male
  Weight: 70 kg

DRUGS (56)
  1. VITAMIN B1 [Concomitant]
     Active Substance: THIAMINE HYDROCHLORIDE
     Indication: PROPHYLAXIS
     Route: 048
     Dates: start: 20190319, end: 20190319
  2. MECOBALAMIN [Concomitant]
     Active Substance: METHYLCOBALAMIN
     Route: 042
     Dates: start: 20190427, end: 20190427
  3. MECOBALAMIN [Concomitant]
     Active Substance: METHYLCOBALAMIN
     Route: 042
     Dates: start: 20190506, end: 20190506
  4. MECOBALAMIN [Concomitant]
     Active Substance: METHYLCOBALAMIN
     Route: 042
     Dates: start: 20190816, end: 20190819
  5. ZOLEDRONIC ACID [Concomitant]
     Active Substance: ZOLEDRONIC ACID
     Route: 042
     Dates: start: 20191016, end: 20191016
  6. HUMAN IMMUNOGLOBULIN [Concomitant]
     Route: 042
     Dates: start: 20190906, end: 20190906
  7. HUMAN IMMUNOGLOBULIN [Concomitant]
     Route: 042
     Dates: start: 20190919, end: 20190919
  8. HUMAN IMMUNOGLOBULIN [Concomitant]
     Route: 042
     Dates: start: 20200419, end: 20200419
  9. DARATUMUMAB [Suspect]
     Active Substance: DARATUMUMAB
     Indication: PLASMA CELL MYELOMA
     Dosage: 1120 MG ONCE ON DAY 1
     Route: 042
     Dates: start: 20190319
  10. MECOBALAMIN [Concomitant]
     Active Substance: METHYLCOBALAMIN
     Route: 042
     Dates: start: 20190320, end: 20190322
  11. MECOBALAMIN [Concomitant]
     Active Substance: METHYLCOBALAMIN
     Route: 042
     Dates: start: 20190510, end: 20190513
  12. ROCALTROL [Concomitant]
     Active Substance: CALCITRIOL
     Indication: PROPHYLAXIS
     Route: 048
     Dates: start: 20190319
  13. CALCIUM CARBONATE WITH D3 [Concomitant]
     Active Substance: CALCIUM CARBONATE\CHOLECALCIFEROL
     Indication: PROPHYLAXIS
     Route: 048
     Dates: start: 20190319
  14. PARACETAMOL AND DIHYDROCODEINE TARTRATE [Concomitant]
     Dates: start: 20190330, end: 20190330
  15. ZOLEDRONIC ACID [Concomitant]
     Active Substance: ZOLEDRONIC ACID
     Indication: PROPHYLAXIS
     Route: 042
     Dates: start: 20190329, end: 20190329
  16. ZOLEDRONIC ACID [Concomitant]
     Active Substance: ZOLEDRONIC ACID
     Route: 042
     Dates: start: 20200514, end: 20200514
  17. HUMAN IMMUNOGLOBULIN [Concomitant]
     Route: 042
     Dates: start: 20191212, end: 20191212
  18. HUMAN IMMUNOGLOBULIN [Concomitant]
     Route: 042
     Dates: start: 20200324, end: 20200324
  19. VALACYCLOVIR HYDROCHLORIDE. [Concomitant]
     Active Substance: VALACYCLOVIR HYDROCHLORIDE
     Indication: PROPHYLAXIS
     Route: 048
     Dates: start: 20190319, end: 20190319
  20. VALACYCLOVIR HYDROCHLORIDE. [Concomitant]
     Active Substance: VALACYCLOVIR HYDROCHLORIDE
     Route: 048
     Dates: start: 20190320
  21. PARACETAMOL AND DIHYDROCODEINE TARTRATE [Concomitant]
     Indication: NEURALGIA
     Route: 048
     Dates: start: 20190319, end: 20190319
  22. HUMAN IMMUNOGLOBULIN [Concomitant]
     Route: 042
     Dates: start: 20190810, end: 20190810
  23. HUMAN IMMUNOGLOBULIN [Concomitant]
     Route: 042
     Dates: start: 20190816, end: 20190816
  24. HUMAN IMMUNOGLOBULIN [Concomitant]
     Route: 042
     Dates: start: 20200227, end: 20200227
  25. VITAMIN B1 [Concomitant]
     Active Substance: THIAMINE HYDROCHLORIDE
     Route: 048
     Dates: start: 20190320
  26. MECOBALAMIN [Concomitant]
     Active Substance: METHYLCOBALAMIN
     Indication: PROPHYLAXIS
     Route: 042
     Dates: start: 20190319, end: 20190319
  27. MECOBALAMIN [Concomitant]
     Active Substance: METHYLCOBALAMIN
     Route: 048
     Dates: start: 20190324
  28. MECOBALAMIN [Concomitant]
     Active Substance: METHYLCOBALAMIN
     Route: 042
     Dates: start: 20190831, end: 20190902
  29. PARACETAMOL AND DIHYDROCODEINE TARTRATE [Concomitant]
     Route: 048
     Dates: start: 20190401, end: 20190401
  30. ZOLEDRONIC ACID [Concomitant]
     Active Substance: ZOLEDRONIC ACID
     Route: 042
     Dates: start: 20200227, end: 20200227
  31. ZOLEDRONIC ACID [Concomitant]
     Active Substance: ZOLEDRONIC ACID
     Route: 042
     Dates: start: 20200419, end: 20200419
  32. MECOBALAMIN [Concomitant]
     Active Substance: METHYLCOBALAMIN
     Route: 042
     Dates: start: 20190326, end: 20190415
  33. MECOBALAMIN [Concomitant]
     Active Substance: METHYLCOBALAMIN
     Route: 042
     Dates: start: 20190425, end: 20190425
  34. MECOBALAMIN [Concomitant]
     Active Substance: METHYLCOBALAMIN
     Route: 042
     Dates: start: 20190726, end: 20190729
  35. ZOLEDRONIC ACID [Concomitant]
     Active Substance: ZOLEDRONIC ACID
     Route: 042
     Dates: start: 20191212, end: 20191212
  36. ZOLEDRONIC ACID [Concomitant]
     Active Substance: ZOLEDRONIC ACID
     Route: 042
     Dates: start: 20200109, end: 20200109
  37. HUMAN IMMUNOGLOBULIN [Concomitant]
     Indication: IMMUNE DISORDER PROPHYLAXIS
     Route: 042
     Dates: start: 20190706, end: 20190710
  38. HUMAN IMMUNOGLOBULIN [Concomitant]
     Route: 042
     Dates: start: 20190728, end: 20190728
  39. HUMAN IMMUNOGLOBULIN [Concomitant]
     Route: 042
     Dates: start: 20191016, end: 20191016
  40. BORTEZOMIB. [Concomitant]
     Active Substance: BORTEZOMIB
     Indication: PLASMA CELL MYELOMA
     Route: 058
     Dates: start: 20190319, end: 20190909
  41. MECOBALAMIN [Concomitant]
     Active Substance: METHYLCOBALAMIN
     Route: 042
     Dates: start: 20190419, end: 20190419
  42. MECOBALAMIN [Concomitant]
     Active Substance: METHYLCOBALAMIN
     Route: 042
     Dates: start: 20190503, end: 20190505
  43. PARACETAMOL AND DIHYDROCODEINE TARTRATE [Concomitant]
     Route: 048
     Dates: start: 20190329, end: 20190329
  44. ZOLEDRONIC ACID [Concomitant]
     Active Substance: ZOLEDRONIC ACID
     Route: 042
     Dates: start: 20200324, end: 20200324
  45. HUMAN IMMUNOGLOBULIN [Concomitant]
     Route: 042
     Dates: start: 20191214, end: 20191214
  46. MECOBALAMIN [Concomitant]
     Active Substance: METHYLCOBALAMIN
     Route: 042
     Dates: start: 20190420, end: 20190422
  47. MECOBALAMIN [Concomitant]
     Active Substance: METHYLCOBALAMIN
     Route: 042
     Dates: start: 20190426, end: 20190426
  48. PARACETAMOL AND DIHYDROCODEINE TARTRATE [Concomitant]
     Route: 048
     Dates: start: 20190402, end: 20190409
  49. ZOLEDRONIC ACID [Concomitant]
     Active Substance: ZOLEDRONIC ACID
     Route: 042
     Dates: start: 20190809, end: 20190809
  50. HUMAN IMMUNOGLOBULIN [Concomitant]
     Route: 042
     Dates: start: 20190831, end: 20190831
  51. HUMAN IMMUNOGLOBULIN [Concomitant]
     Route: 042
     Dates: start: 20200514, end: 20200514
  52. DEXAMETHASONE. [Concomitant]
     Active Substance: DEXAMETHASONE
     Indication: PLASMA CELL MYELOMA
     Dosage: D1, D4, D5, D8, D9, D11, D12,
     Route: 048
     Dates: start: 20190319, end: 20190910
  53. PARACETAMOL AND DIHYDROCODEINE TARTRATE [Concomitant]
     Route: 048
     Dates: start: 20200419
  54. ZOLEDRONIC ACID [Concomitant]
     Active Substance: ZOLEDRONIC ACID
     Route: 042
     Dates: start: 20190906, end: 20190906
  55. ZOLEDRONIC ACID [Concomitant]
     Active Substance: ZOLEDRONIC ACID
     Route: 042
     Dates: start: 20191114, end: 20191114
  56. HUMAN IMMUNOGLOBULIN [Concomitant]
     Route: 042
     Dates: start: 20200109, end: 20200109

REACTIONS (1)
  - Eczema [Not Recovered/Not Resolved]

NARRATIVE: CASE EVENT DATE: 20191125
